FAERS Safety Report 24333848 (Version 1)
Quarter: 2024Q3

REPORT INFORMATION
  Report Type: Spontaneous
  Country: US (occurrence: US)
  Receive Date: 20240918
  Receipt Date: 20240918
  Transmission Date: 20241017
  Serious: No
  Sender: SANOFI AVENTIS
  Company Number: US-SA-2024SA267021

PATIENT
  Sex: Female

DRUGS (1)
  1. DUPIXENT [Suspect]
     Active Substance: DUPILUMAB
     Indication: Dermatitis herpetiformis
     Dosage: 300.000MG QOW
     Route: 058
     Dates: start: 201706

REACTIONS (2)
  - Product dose omission in error [Unknown]
  - Product use in unapproved indication [Unknown]
